FAERS Safety Report 18262764 (Version 1)
Quarter: 2020Q3

REPORT INFORMATION
  Report Type: Spontaneous
  Country: US (occurrence: US)
  Receive Date: 20200914
  Receipt Date: 20200914
  Transmission Date: 20201103
  Serious: No
  Sender: FDA-Public Use
  Company Number: US-TEVA-2020-US-1827292

PATIENT
  Age: 67 Year
  Sex: Female
  Weight: 62.13 kg

DRUGS (8)
  1. MUCUS ER [Suspect]
     Active Substance: GUAIFENESIN
     Indication: COUGH
  2. ALLEGRA [Concomitant]
     Active Substance: FEXOFENADINE HYDROCHLORIDE
  3. WELLBUTRIN [Concomitant]
     Active Substance: BUPROPION HYDROCHLORIDE
     Dates: start: 1994
  4. TECFIDERA [Concomitant]
     Active Substance: DIMETHYL FUMARATE
     Dates: start: 2015
  5. MUCUS ER [Suspect]
     Active Substance: GUAIFENESIN
     Indication: INCREASED UPPER AIRWAY SECRETION
     Dosage: 1200 MILLIGRAM DAILY; FORM OF ADMIN: PROLONGED?RELEASE TABLET
     Route: 048
     Dates: start: 20200902, end: 20200902
  6. VITAMIN D [Concomitant]
     Active Substance: VITAMIN D NOS
  7. TIMOLOL. [Concomitant]
     Active Substance: TIMOLOL
  8. PREMPRO [Concomitant]
     Active Substance: ESTROGENS, CONJUGATED\MEDROXYPROGESTERONE ACETATE

REACTIONS (1)
  - Retching [Recovered/Resolved]

NARRATIVE: CASE EVENT DATE: 20200902
